FAERS Safety Report 12066990 (Version 2)
Quarter: 2017Q2

REPORT INFORMATION
  Report Type: Spontaneous
  Country: US (occurrence: US)
  Receive Date: 20160210
  Receipt Date: 20170607
  Transmission Date: 20170829
  Serious: No
  Sender: FDA-Public Use
  Company Number: US-JNJFOC-20151102922

PATIENT
  Age: 24 Year
  Sex: Male

DRUGS (1)
  1. RISPERDAL [Suspect]
     Active Substance: RISPERIDONE
     Indication: DEPRESSION
     Dosage: PATIENT TOOK VARIABLE DOSES OF 0.5MG TO 1MG OF RISPERDAL
     Route: 048
     Dates: start: 199905, end: 200307

REACTIONS (6)
  - Hyperprolactinaemia [Unknown]
  - Off label use [Unknown]
  - Galactorrhoea [Unknown]
  - Abnormal weight gain [Unknown]
  - Product use in unapproved indication [Unknown]
  - Gynaecomastia [Not Recovered/Not Resolved]

NARRATIVE: CASE EVENT DATE: 199905
